FAERS Safety Report 6875761-2 (Version None)
Quarter: 2010Q3

REPORT INFORMATION
  Report Type: 
  Country: None (occurrence: None)
  Receive Date: 20100727
  Receipt Date: 20071205
  Transmission Date: 20110219
  Serious: Yes (Death, Hospitalization)
  Sender: FDA-Public Use
  Company Number: US-PFIZER INC-2006151369

PATIENT
  Sex: Female
  Weight: 97.5 kg

DRUGS (3)
  1. CELEBREX [Suspect]
     Indication: PAIN
     Dates: start: 20020130, end: 20030929
  2. VIOXX [Suspect]
     Indication: CARPAL TUNNEL SYNDROME
     Dates: start: 20010816, end: 20030929
  3. VIOXX [Suspect]
     Indication: PAIN

REACTIONS (1)
  - MYOCARDIAL INFARCTION [None]
